FAERS Safety Report 5626091-8 (Version None)
Quarter: 2008Q1

REPORT INFORMATION
  Report Type: 
  Country: None (occurrence: None)
  Receive Date: 20080213
  Receipt Date: 20080213
  Transmission Date: 20080703
  Serious: Yes (Other)
  Sender: FDA-Public Use
  Company Number: None

PATIENT
  Sex: Female
  Weight: 53.5244 kg

DRUGS (2)
  1. BACTRIM DS [Suspect]
     Indication: ACNE
     Dosage: ONE TABLET  TWICE DAILY  PO
     Route: 048
     Dates: start: 20080130, end: 20080208
  2. BACTRIM DS [Suspect]
     Indication: FURUNCLE
     Dosage: ONE TABLET  TWICE DAILY  PO
     Route: 048
     Dates: start: 20080130, end: 20080208

REACTIONS (2)
  - RASH MACULO-PAPULAR [None]
  - RASH PRURITIC [None]
